FAERS Safety Report 15011782 (Version 1)
Quarter: 2018Q2

REPORT INFORMATION
  Report Type: Spontaneous
  Country: US (occurrence: US)
  Receive Date: 20180522
  Receipt Date: 20180522
  Transmission Date: 20180711
  Serious: Yes (Other)
  Sender: FDA-Public Use
  Company Number: None

PATIENT

DRUGS (1)
  1. MORPHINE SULFATE. [Suspect]
     Active Substance: MORPHINE SULFATE
     Indication: PAIN
     Route: 042
     Dates: start: 20000515

REACTIONS (3)
  - Injection site pruritus [None]
  - Injection site induration [None]
  - Wrong technique in product usage process [None]

NARRATIVE: CASE EVENT DATE: 20180515
